FAERS Safety Report 18274158 (Version 1)
Quarter: 2020Q3

REPORT INFORMATION
  Report Type: Spontaneous
  Country: JP (occurrence: JP)
  Receive Date: 20200916
  Receipt Date: 20200916
  Transmission Date: 20201103
  Serious: Yes (Hospitalization)
  Sender: FDA-Public Use
  Company Number: JP-JNJFOC-20200913688

PATIENT
  Age: 87 Year
  Sex: Male

DRUGS (11)
  1. GASTROM [Concomitant]
     Active Substance: ECABET SODIUM
     Dosage: GRANULATED POWDER
     Route: 048
  2. MYONAL                             /00287502/ [Concomitant]
     Active Substance: EPERISONE HYDROCHLORIDE
     Dosage: DOSE UNKNOWN
     Route: 048
  3. ZYTIGA [Suspect]
     Active Substance: ABIRATERONE ACETATE
     Route: 048
     Dates: start: 201911, end: 20200604
  4. ZYTIGA [Suspect]
     Active Substance: ABIRATERONE ACETATE
     Indication: PROSTATE CANCER
     Route: 048
     Dates: start: 20191004, end: 201911
  5. FLIVAS [Concomitant]
     Active Substance: NAFTOPIDIL
     Dosage: DOSE UNKNOWN
     Route: 048
  6. PANALDINE [Concomitant]
     Active Substance: TICLOPIDINE HYDROCHLORIDE
     Indication: PRODUCT USED FOR UNKNOWN INDICATION
     Dosage: DOSE UNKNOWN
     Route: 048
  7. PREDNISOLONE. [Suspect]
     Active Substance: PREDNISOLONE
     Indication: PROSTATE CANCER
     Route: 065
  8. FLUITRAN [Concomitant]
     Active Substance: TRICHLORMETHIAZIDE
     Indication: PRODUCT USED FOR UNKNOWN INDICATION
     Dosage: DOSE UNKNOWN
     Route: 048
  9. SERMION                            /00396401/ [Concomitant]
     Active Substance: NICERGOLINE
     Dosage: DOSE UNKNOWN
     Route: 048
  10. ZYTIGA [Suspect]
     Active Substance: ABIRATERONE ACETATE
     Indication: PROSTATE CANCER
     Route: 048
     Dates: start: 201908, end: 20191004
  11. AMLODIPINE [Concomitant]
     Active Substance: AMLODIPINE BESYLATE
     Indication: PRODUCT USED FOR UNKNOWN INDICATION
     Dosage: DOSE UNKNOWN
     Route: 048

REACTIONS (4)
  - Glycosylated haemoglobin increased [Unknown]
  - Hepatic enzyme increased [Unknown]
  - Urinary retention [Unknown]
  - Fatigue [Unknown]

NARRATIVE: CASE EVENT DATE: 20191004
